FAERS Safety Report 14834505 (Version 2)
Quarter: 2018Q2

REPORT INFORMATION
  Report Type: Report from Study
  Country: None (occurrence: DE)
  Receive Date: 20180501
  Receipt Date: 20180511
  Transmission Date: 20180711
  Serious: Yes (Hospitalization)
  Sender: FDA-Public Use
  Company Number: DE-ABBVIE-18P-062-2302123-00

PATIENT
  Age: 81 Year
  Sex: Male
  Weight: 86 kg

DRUGS (15)
  1. VITALUX PLUS [Concomitant]
     Active Substance: VITAMINS
     Indication: VITAMIN SUPPLEMENTATION
     Route: 048
     Dates: start: 2008
  2. VOLTAREN OINTMENT [Concomitant]
     Indication: ARTHRALGIA
     Route: 061
     Dates: start: 20180313, end: 20180315
  3. ORAL FLUIDS [Concomitant]
     Dates: start: 20180503
  4. DECRISTOL [Concomitant]
     Indication: VITAMIN SUPPLEMENTATION
     Route: 048
     Dates: start: 2017
  5. ORAL FLUIDS [Concomitant]
     Indication: PROPHYLAXIS
     Dates: start: 20180315, end: 20180407
  6. VENETOCLAX. [Suspect]
     Active Substance: VENETOCLAX
     Route: 048
     Dates: start: 20180503, end: 20180507
  7. VENETOCLAX. [Suspect]
     Active Substance: VENETOCLAX
     Route: 048
     Dates: start: 20180508
  8. LEVOFLOXACIN. [Concomitant]
     Active Substance: LEVOFLOXACIN
     Indication: ANTIBIOTIC PROPHYLAXIS
     Route: 048
     Dates: start: 20180321, end: 20180401
  9. SODIUM BICARBONATE. [Concomitant]
     Active Substance: SODIUM BICARBONATE
     Indication: PROPHYLAXIS
     Route: 042
     Dates: start: 20180312, end: 20180313
  10. NORMAL SALINE SOLUTION (0.9% SODIUM CHLORIDE) [Concomitant]
     Indication: PROPHYLAXIS
     Dates: start: 20180312, end: 20180314
  11. VENETOCLAX. [Suspect]
     Active Substance: VENETOCLAX
     Indication: MYELODYSPLASTIC SYNDROME
     Route: 048
     Dates: start: 20180312, end: 20180405
  12. PANTOPRAZOL [Concomitant]
     Active Substance: PANTOPRAZOLE SODIUM
     Indication: PROPHYLAXIS
     Route: 048
     Dates: start: 20180403
  13. HEPARIN OINTMENT [Concomitant]
     Indication: THROMBOPHLEBITIS
     Route: 061
     Dates: start: 20180316, end: 20180323
  14. CIPROFLOXACIN. [Concomitant]
     Active Substance: CIPROFLOXACIN
     Indication: ANTIBIOTIC PROPHYLAXIS
     Route: 048
     Dates: start: 20180313, end: 20180320
  15. TEBONIN FORTE [Concomitant]
     Indication: ANTIPLATELET THERAPY
     Route: 048
     Dates: start: 1998

REACTIONS (2)
  - Back pain [Not Recovered/Not Resolved]
  - Chondrocalcinosis pyrophosphate [Recovered/Resolved]

NARRATIVE: CASE EVENT DATE: 20180326
